FAERS Safety Report 8941362 (Version 2)
Quarter: 2014Q2

REPORT INFORMATION
  Report Type: Spontaneous
  Country: NL (occurrence: NL)
  Receive Date: 20121203
  Receipt Date: 20140627
  Transmission Date: 20141212
  Serious: Yes (Other)
  Sender: FDA-Public Use
  Company Number: NL-ROCHE-1160602

PATIENT
  Sex: 0

DRUGS (7)
  1. RIVOTRIL [Suspect]
     Indication: PRODUCT USED FOR UNKNOWN INDICATION
     Route: 064
  2. ANAFRANIL [Suspect]
     Indication: PRODUCT USED FOR UNKNOWN INDICATION
     Route: 064
  3. TRANDATE [Suspect]
     Indication: HYPERTENSION
     Route: 064
  4. MECLIZINE HYDROCHLORIDE/PYRIDOXINE HYDROCHLORIDE [Suspect]
     Indication: NAUSEA
     Route: 064
  5. DIORALYTE SACHET [Suspect]
     Indication: NAUSEA
     Route: 064
  6. IMODIUM [Suspect]
     Indication: PRODUCT USED FOR UNKNOWN INDICATION
     Route: 064
  7. PHENOBARBITAL [Concomitant]

REACTIONS (9)
  - Maternal exposure timing unspecified [Unknown]
  - Withdrawal syndrome [Unknown]
  - Developmental delay [Unknown]
  - Foetal exposure during pregnancy [None]
  - Maternal drugs affecting foetus [None]
  - Premature baby [None]
  - Irritability [None]
  - Tremor [None]
  - Tremor [None]
